FAERS Safety Report 23821566 (Version 1)
Quarter: 2024Q2

REPORT INFORMATION
  Report Type: Spontaneous
  Country: US (occurrence: None)
  Receive Date: 20240505
  Receipt Date: 20240505
  Transmission Date: 20240716
  Serious: Yes (Hospitalization, Disabling)
  Sender: FDA-Public Use
  Company Number: None

PATIENT
  Age: 18 Year
  Sex: Male
  Weight: 58.5 kg

DRUGS (7)
  1. OFLOXACIN [Suspect]
     Active Substance: OFLOXACIN
     Indication: Ear infection
     Dosage: 1  DROP TWICE A DAY AURICULAR
     Route: 001
     Dates: start: 20240427, end: 20240427
  2. ATIVAN [Concomitant]
  3. METHOCARBAMOL [Concomitant]
  4. Men^s one a day multivitamin [Concomitant]
  5. MAGNESIUM OXIDE [Concomitant]
     Active Substance: MAGNESIUM OXIDE
  6. POTASSIUM GLUCONATE [Concomitant]
  7. omega 3 fish oil [Concomitant]

REACTIONS (9)
  - Neuralgia [None]
  - Brain fog [None]
  - Neck pain [None]
  - Pruritus [None]
  - Insomnia [None]
  - Photopsia [None]
  - Ear pain [None]
  - Pain in extremity [None]
  - Burning sensation [None]

NARRATIVE: CASE EVENT DATE: 20240427
